FAERS Safety Report 5718236-6 (Version None)
Quarter: 2008Q2

REPORT INFORMATION
  Report Type: 
  Country: None (occurrence: None)
  Receive Date: 20080425
  Receipt Date: 20080416
  Transmission Date: 20081010
  Serious: Yes (Other)
  Sender: FDA-Public Use
  Company Number: ES-JNJFOC-20080404917

PATIENT
  Age: 45 Year
  Sex: Female

DRUGS (3)
  1. INFLIXIMAB [Suspect]
     Indication: CROHN'S DISEASE
     Route: 042
  2. ADALIMUMAB [Suspect]
     Indication: CROHN'S DISEASE
  3. METHOTREXATE [Concomitant]
     Route: 058

REACTIONS (2)
  - INFUSION RELATED REACTION [None]
  - LUPUS-LIKE SYNDROME [None]
